FAERS Safety Report 19710170 (Version 1)
Quarter: 2021Q3

REPORT INFORMATION
  Report Type: Spontaneous
  Country: CN (occurrence: CN)
  Receive Date: 20210817
  Receipt Date: 20210817
  Transmission Date: 20211014
  Serious: Yes (Hospitalization, Other)
  Sender: FDA-Public Use
  Company Number: CN-PFIZER INC-202101007979

PATIENT
  Age: 19 Year
  Sex: Female
  Weight: 44.2 kg

DRUGS (3)
  1. MEDROL [Suspect]
     Active Substance: METHYLPREDNISOLONE
     Indication: THERAPEUTIC PROCEDURE
     Dosage: 16.0 MG, 1X/DAY
     Route: 048
     Dates: start: 20210616, end: 20210714
  2. TACROLIMUS. [Suspect]
     Active Substance: TACROLIMUS
     Indication: THERAPEUTIC PROCEDURE
     Dosage: 3.5 MG, 2X/DAY
     Route: 048
     Dates: start: 20210616, end: 20210714
  3. SAI KE PING [Suspect]
     Active Substance: MYCOPHENOLATE MOFETIL
     Indication: THERAPEUTIC PROCEDURE
     Dosage: 0.75 G, 2X/DAY
     Route: 048
     Dates: start: 20210616, end: 20210714

REACTIONS (2)
  - Urinary tract infection [Recovering/Resolving]
  - Disease recurrence [Recovering/Resolving]

NARRATIVE: CASE EVENT DATE: 20210710
